FAERS Safety Report 19029521 (Version 1)
Quarter: 2021Q1

REPORT INFORMATION
  Report Type: Spontaneous
  Country: PT (occurrence: PT)
  Receive Date: 20210318
  Receipt Date: 20210318
  Transmission Date: 20210420
  Serious: Yes (Death, Other)
  Sender: FDA-Public Use
  Company Number: PT-009507513-2103PRT003586

PATIENT
  Sex: Male

DRUGS (1)
  1. GRAZOPREVIR (+) ELBASVIR [Suspect]
     Active Substance: ELBASVIR\GRAZOPREVIR
     Dosage: 4 WEEKS (28 TABLETS)
     Route: 048

REACTIONS (2)
  - Product use issue [Unknown]
  - Death [Fatal]
